FAERS Safety Report 7459916-4 (Version None)
Quarter: 2011Q2

REPORT INFORMATION
  Report Type: 
  Country: None (occurrence: None)
  Receive Date: 20110505
  Receipt Date: 20110502
  Transmission Date: 20111010
  Serious: Yes (Hospitalization, Other)
  Sender: FDA-Public Use
  Company Number: US-PFIZER INC-2011094667

PATIENT
  Sex: Female

DRUGS (1)
  1. GEODON [Suspect]
     Dosage: UNK

REACTIONS (5)
  - TRANSIENT ISCHAEMIC ATTACK [None]
  - CONVULSION [None]
  - DYSKINESIA [None]
  - MUSCLE TIGHTNESS [None]
  - RESTLESSNESS [None]
